FAERS Safety Report 9473843 (Version 1)
Quarter: 2013Q3

REPORT INFORMATION
  Report Type: Spontaneous
  Country: US (occurrence: US)
  Receive Date: 20130823
  Receipt Date: 20130823
  Transmission Date: 20140515
  Serious: Yes (Other)
  Sender: FDA-Public Use
  Company Number: CHPA2013US013286

PATIENT
  Age: 54 Year
  Sex: Female

DRUGS (3)
  1. EXCEDRIN MIGRAINE [Suspect]
     Indication: BACK PAIN
     Dosage: 2 DF, PRN
     Route: 048
     Dates: start: 2002
  2. EXCEDRIN MIGRAINE [Suspect]
     Indication: HEADACHE
  3. IBUPROFEN [Suspect]
     Indication: BACK PAIN
     Dosage: 1 DF, UNK
     Route: 048

REACTIONS (4)
  - Coeliac disease [Not Recovered/Not Resolved]
  - Back pain [Unknown]
  - Headache [Unknown]
  - Off label use [Unknown]
